FAERS Safety Report 18865090 (Version 1)
Quarter: 2021Q1

REPORT INFORMATION
  Report Type: Spontaneous
  Country: HK (occurrence: HK)
  Receive Date: 20210208
  Receipt Date: 20210208
  Transmission Date: 20210420
  Serious: No
  Sender: FDA-Public Use
  Company Number: None

PATIENT
  Age: 39 Year
  Sex: Female
  Weight: 63.4 kg

DRUGS (3)
  1. FOLIC ACID. [Concomitant]
     Active Substance: FOLIC ACID
  2. COLTALIN?DM [Suspect]
     Active Substance: ACETAMINOPHEN\CHLORPHENIRAMINE\DEXTROMETHORPHAN\PHENYLEPHRINE
     Indication: NASOPHARYNGITIS
     Dosage: ?          QUANTITY:2 TABLET(S);?
     Route: 048
     Dates: start: 20210207, end: 20210207
  3. VITAMIN C [Concomitant]
     Active Substance: ASCORBIC ACID

REACTIONS (13)
  - Abdominal pain upper [None]
  - Vomiting projectile [None]
  - Urticaria [None]
  - Feeling abnormal [None]
  - Fatigue [None]
  - Nausea [None]
  - Pain [None]
  - Skin exfoliation [None]
  - Abdominal tenderness [None]
  - Rash [None]
  - Back disorder [None]
  - Gastric dilatation [None]
  - Muscle disorder [None]

NARRATIVE: CASE EVENT DATE: 20210207
